FAERS Safety Report 24948610 (Version 1)
Quarter: 2025Q1

REPORT INFORMATION
  Report Type: Spontaneous
  Country: US (occurrence: US)
  Receive Date: 20250210
  Receipt Date: 20250210
  Transmission Date: 20250408
  Serious: Yes (Life-Threatening, Hospitalization)
  Sender: ACCORD
  Company Number: US-MLMSERVICE-20250123-PI370532-00203-1

PATIENT
  Age: 52 Year
  Sex: Male

DRUGS (4)
  1. HYDROCHLOROTHIAZIDE [Suspect]
     Active Substance: HYDROCHLOROTHIAZIDE
     Indication: Hypertension
     Dates: start: 2024, end: 2024
  2. LISINOPRIL [Suspect]
     Active Substance: LISINOPRIL
     Indication: Hypertension
     Dates: start: 201507, end: 2024
  3. ROSUVASTATIN [Concomitant]
     Active Substance: ROSUVASTATIN
  4. LISINOPRIL [Suspect]
     Active Substance: LISINOPRIL
     Indication: Hypertension
     Dates: start: 2024, end: 2024

REACTIONS (6)
  - Acute kidney injury [Recovering/Resolving]
  - Metabolic acidosis [Recovering/Resolving]
  - Hyperkalaemia [Recovering/Resolving]
  - Renal tubular necrosis [Recovering/Resolving]
  - Intercapillary glomerulosclerosis [Recovering/Resolving]
  - Nephrocalcinosis [Recovering/Resolving]

NARRATIVE: CASE EVENT DATE: 20240101
